FAERS Safety Report 24411660 (Version 1)
Quarter: 2024Q4

REPORT INFORMATION
  Report Type: Spontaneous
  Country: US (occurrence: US)
  Receive Date: 20241008
  Receipt Date: 20241008
  Transmission Date: 20250114
  Serious: Yes (Other)
  Sender: AMGEN
  Company Number: US-AMGEN-USASP2024199007

PATIENT
  Age: 75 Year
  Sex: Male

DRUGS (8)
  1. BLINATUMOMAB [Suspect]
     Active Substance: BLINATUMOMAB
     Indication: B-cell type acute leukaemia
     Dosage: UNK
     Route: 065
     Dates: start: 20210119
  2. BLINATUMOMAB [Suspect]
     Active Substance: BLINATUMOMAB
     Dosage: UNK
     Route: 065
     Dates: start: 20210922
  3. BLINATUMOMAB [Suspect]
     Active Substance: BLINATUMOMAB
     Dosage: REPEATED COURSE OF SALVAGE BLINATUMOMAB
     Route: 065
     Dates: start: 20240222
  4. PREDNISONE [Suspect]
     Active Substance: PREDNISONE
     Indication: Acute lymphocytic leukaemia recurrent
     Dosage: 60 MILLIGRAM, Q4WK, DAY 1 - 5
     Route: 065
     Dates: start: 20220308
  5. NILOTINIB [Concomitant]
     Active Substance: NILOTINIB
     Dosage: UNK
     Dates: start: 20210922
  6. NILOTINIB [Concomitant]
     Active Substance: NILOTINIB
     Dosage: 200 MILLIGRAM, BID
  7. NILOTINIB [Concomitant]
     Active Substance: NILOTINIB
     Dosage: UNK
     Dates: start: 20211027
  8. NILOTINIB [Concomitant]
     Active Substance: NILOTINIB
     Dosage: 200 MILLIGRAM, BID
     Dates: start: 20240222

REACTIONS (5)
  - Febrile neutropenia [Unknown]
  - Acute lymphocytic leukaemia recurrent [Recovered/Resolved]
  - Thrombocytopenia [Unknown]
  - Enteritis [Unknown]
  - Minimal residual disease [Unknown]

NARRATIVE: CASE EVENT DATE: 20210901
